FAERS Safety Report 5288903-X (Version None)
Quarter: 2007Q2

REPORT INFORMATION
  Report Type: 
  Country: None (occurrence: None)
  Receive Date: 20070405
  Receipt Date: 20070326
  Transmission Date: 20071010
  Serious: Yes (Death, Hospitalization, Other)
  Sender: FDA-Public Use
  Company Number: US-PFIZER INC-2006125724

PATIENT
  Sex: Female

DRUGS (2)
  1. CELEBREX [Suspect]
     Indication: PAIN MANAGEMENT
     Dates: start: 19990401, end: 19990924
  2. VIOXX [Suspect]
     Dates: start: 20000311, end: 20000822

REACTIONS (5)
  - ANXIETY [None]
  - CARDIAC FAILURE [None]
  - DEPRESSION [None]
  - ISCHAEMIC STROKE [None]
  - RESPIRATORY FAILURE [None]
